FAERS Safety Report 6783154-1 (Version None)
Quarter: 2010Q2

REPORT INFORMATION
  Report Type: 
  Country: None (occurrence: None)
  Receive Date: 20100622
  Receipt Date: 20100610
  Transmission Date: 20101027
  Serious: Yes (Hospitalization)
  Sender: FDA-Public Use
  Company Number: PL-PFIZER INC-2010072783

PATIENT

DRUGS (1)
  1. CLINDAMYCIN HCL [Suspect]
     Dosage: UNK
     Route: 048
     Dates: start: 20100518

REACTIONS (2)
  - PERIPHERAL VASCULAR DISORDER [None]
  - RASH [None]
